FAERS Safety Report 20740054 (Version 1)
Quarter: 2022Q2

REPORT INFORMATION
  Report Type: Spontaneous
  Country: RU (occurrence: RU)
  Receive Date: 20220422
  Receipt Date: 20220422
  Transmission Date: 20220720
  Serious: Yes (Other)
  Sender: FDA-Public Use
  Company Number: RU-ELI_LILLY_AND_COMPANY-RU202204005373

PATIENT
  Age: 66 Year
  Sex: Female

DRUGS (5)
  1. TERIPARATIDE [Suspect]
     Active Substance: TERIPARATIDE
     Indication: Osteoporosis
     Dosage: 1 DOSAGE FORM, DAILY
     Route: 065
  2. LEVOTHYROXINE SODIUM [Concomitant]
     Active Substance: LEVOTHYROXINE SODIUM
     Indication: Product used for unknown indication
  3. DETRIMAX VITAMIN D3 [Concomitant]
     Indication: Product used for unknown indication
     Dosage: UNK UNK, EACH MORNING
  4. ALFACALCIDOL [Concomitant]
     Active Substance: ALFACALCIDOL
     Indication: Product used for unknown indication
     Dosage: UNK UNK, EACH EVENING
  5. AESCUSAN [AESCULUS HIPPOCASTANUM SEED;THIAMIN [Concomitant]
     Indication: Product used for unknown indication
     Dosage: UNK

REACTIONS (8)
  - Deafness [Unknown]
  - Tinnitus [Unknown]
  - Insomnia [Unknown]
  - Musculoskeletal pain [Unknown]
  - Chest pain [Unknown]
  - Arthralgia [Unknown]
  - Blood pressure abnormal [Unknown]
  - Cerebrovascular disorder [Unknown]
